FAERS Safety Report 9354560 (Version 1)
Quarter: 2013Q2

REPORT INFORMATION
  Report Type: Spontaneous
  Country: PL (occurrence: PL)
  Receive Date: 20130618
  Receipt Date: 20130618
  Transmission Date: 20140414
  Serious: Yes (Other)
  Sender: FDA-Public Use
  Company Number: PL-BAXTER-2013BAX020177

PATIENT
  Age: 49 Year
  Sex: Female

DRUGS (4)
  1. ENDOXAN [Suspect]
     Indication: ENDOMETRIAL ADENOCARCINOMA
     Route: 065
  2. HOLOXAN [Suspect]
     Indication: ENDOMETRIAL ADENOCARCINOMA
     Route: 065
  3. DOXORUBICIN [Suspect]
     Indication: ENDOMETRIAL ADENOCARCINOMA
     Route: 065
  4. CISPLATIN [Suspect]
     Indication: ENDOMETRIAL ADENOCARCINOMA
     Route: 065

REACTIONS (1)
  - Disease progression [Not Recovered/Not Resolved]
